FAERS Safety Report 8619436 (Version 2)
Quarter: 2012Q4

REPORT INFORMATION
  Report Type: 
  Country: US (occurrence: US)
  Receive Date: 20120618
  Receipt Date: 20121026
  Transmission Date: 20130627
  Serious: Yes (Hospitalization)
  Sender: FDA-Public Use
  Company Number: US-BAYER-2012-059099

PATIENT
  Age: 19 Year
  Sex: Female
  Weight: 67.57 kg

DRUGS (9)
  1. YAZ [Suspect]
     Indication: CONTRACEPTION
     Dosage: UNK
     Dates: start: 20080517, end: 20100627
  2. YAZ [Suspect]
     Indication: PREMENSTRUAL SYNDROME
  3. GIANVI [Suspect]
     Indication: CONTRACEPTION
     Dosage: UNK
     Dates: start: 20100628, end: 20100630
  4. GIANVI [Suspect]
     Indication: PREMENSTRUAL SYNDROME
  5. AMFETAMINE W/DEXAMFETAMINE [Concomitant]
     Indication: ADD
     Dosage: 20 mg, QD
     Dates: start: 201003, end: 201202
  6. HYDROCODONE W/APAP [Concomitant]
     Indication: PAIN
     Dosage: 1 pill Q 4-6 hrs.
     Dates: end: 20100627
  7. AZITHROMYCIN [Concomitant]
     Dosage: 250 mg pak
     Dates: start: 20100427
  8. VICODIN [Concomitant]
     Dosage: 550 QD
  9. IBUPROFEN [Concomitant]
     Dosage: 400 mg, QD

REACTIONS (3)
  - Deep vein thrombosis [None]
  - Pain [None]
  - Emotional distress [None]
